FAERS Safety Report 11484291 (Version 1)
Quarter: 2015Q3

REPORT INFORMATION
  Report Type: Spontaneous
  Country: US (occurrence: US)
  Receive Date: 20150903
  Receipt Date: 20150903
  Transmission Date: 20151125
  Serious: No
  Sender: FDA-Public Use
  Company Number: US-ELI_LILLY_AND_COMPANY-US201206009631

PATIENT
  Sex: Female

DRUGS (1)
  1. DULOXETINE HYDROCHLORIDE. [Suspect]
     Active Substance: DULOXETINE HYDROCHLORIDE
     Dosage: 90 MG, QD
     Dates: end: 20120622

REACTIONS (5)
  - Influenza like illness [Unknown]
  - Fibromyalgia [Unknown]
  - Migraine [Unknown]
  - Pain [Unknown]
  - Disturbance in attention [Unknown]
